FAERS Safety Report 9530119 (Version 1)
Quarter: 2013Q3

REPORT INFORMATION
  Report Type: Spontaneous
  Country: FR (occurrence: FR)
  Receive Date: 20130917
  Receipt Date: 20130917
  Transmission Date: 20140515
  Serious: Yes (Hospitalization)
  Sender: FDA-Public Use
  Company Number: FR-BAYER-2013-108902

PATIENT
  Age: 83 Year
  Sex: Female

DRUGS (5)
  1. CIFLOX [Suspect]
     Dosage: 2 DF, QD
     Route: 048
     Dates: start: 20130818, end: 20130819
  2. BACTRIM [Suspect]
     Dosage: 0.4286 (1 TO 3 IN 1 WEEK)
     Route: 048
     Dates: start: 20130704, end: 20130819
  3. BENDAMUSTINE [Suspect]
     Dosage: 6.4286 MG/M2 (90 MG/M2, IN 4 WEEKS)
     Route: 042
     Dates: start: 20130703, end: 20130801
  4. MABTHERA [Suspect]
     Dosage: UNK
     Route: 042
     Dates: start: 20130703, end: 20130731
  5. MOTILIUM [Suspect]
     Dosage: 1 DF, BID
     Dates: start: 20130814, end: 20130815

REACTIONS (1)
  - Toxic skin eruption [Recovering/Resolving]
